FAERS Safety Report 5674266-4 (Version None)
Quarter: 2008Q2

REPORT INFORMATION
  Report Type: 
  Country: None (occurrence: None)
  Receive Date: 20080225
  Receipt Date: 20071205
  Transmission Date: 20081010
  Serious: No
  Sender: FDA-Public Use
  Company Number: US-1164744

PATIENT
  Age: 80 Year
  Sex: Female

DRUGS (1)
  1. NEVANAC [Suspect]
     Dosage: (OPHTHALMIC)
     Route: 047
     Dates: start: 20070917, end: 20071127

REACTIONS (1)
  - MADAROSIS [None]
